FAERS Safety Report 8392807-3 (Version None)
Quarter: 2012Q2

REPORT INFORMATION
  Report Type: 
  Country: None (occurrence: None)
  Receive Date: 20120529
  Receipt Date: 20120522
  Transmission Date: 20120825
  Serious: Yes (Hospitalization)
  Sender: FDA-Public Use
  Company Number: US-B.I. PHARMACEUTICALS,INC./RIDGEFIELD-2012-BP-03056BP

PATIENT
  Sex: Female

DRUGS (1)
  1. PRADAXA [Suspect]

REACTIONS (9)
  - HEART RATE IRREGULAR [None]
  - WEIGHT DECREASED [None]
  - INSOMNIA [None]
  - CHEST DISCOMFORT [None]
  - HAEMOPTYSIS [None]
  - NAUSEA [None]
  - HEART RATE INCREASED [None]
  - BLOOD PRESSURE INCREASED [None]
  - LUNG DISORDER [None]
